FAERS Safety Report 9407305 (Version 1)
Quarter: 2013Q3

REPORT INFORMATION
  Report Type: Report from Study
  Country: AU (occurrence: AU)
  Receive Date: 20130718
  Receipt Date: 20130718
  Transmission Date: 20140515
  Serious: Yes (Other)
  Sender: FDA-Public Use
  Company Number: AU-CELGENEUS-008-21880-13070662

PATIENT
  Age: 47 Year
  Sex: Male

DRUGS (7)
  1. REVLIMID [Suspect]
     Indication: PLASMA CELL MYELOMA
     Route: 048
     Dates: start: 20110310, end: 20110629
  2. REVLIMID [Suspect]
     Route: 048
     Dates: start: 20110819, end: 20120128
  3. REVLIMID [Suspect]
     Route: 048
     Dates: start: 20120330
  4. DEXAMETHASONE [Suspect]
     Indication: PLASMA CELL MYELOMA
     Route: 065
     Dates: start: 20110310, end: 20110629
  5. DEXAMETHASONE [Suspect]
     Route: 065
     Dates: start: 20110819, end: 20120128
  6. CYCLOPHOSPHAMIDE [Suspect]
     Indication: PLASMA CELL MYELOMA
     Route: 065
     Dates: start: 20110819, end: 20120128
  7. PREDNISONE [Suspect]
     Indication: PLASMA CELL MYELOMA
     Route: 065
     Dates: start: 20120330

REACTIONS (1)
  - Basosquamous carcinoma of skin [Recovered/Resolved]
